FAERS Safety Report 16668744 (Version 10)
Quarter: 2025Q1

REPORT INFORMATION
  Report Type: Spontaneous
  Country: US (occurrence: US)
  Receive Date: 20190805
  Receipt Date: 20250321
  Transmission Date: 20250409
  Serious: Yes (Other)
  Sender: PFIZER
  Company Number: US-PFIZER INC-2019333380

PATIENT
  Age: 65 Year
  Sex: Female

DRUGS (1)
  1. XELJANZ [Suspect]
     Active Substance: TOFACITINIB CITRATE

REACTIONS (8)
  - Cerebrovascular accident [Unknown]
  - Disease recurrence [Unknown]
  - Paralysis [Unknown]
  - Spinal operation [Unknown]
  - Illness [Unknown]
  - Dysgraphia [Unknown]
  - Pain [Unknown]
  - Thinking abnormal [Unknown]
